FAERS Safety Report 21258133 (Version 1)
Quarter: 2022Q3

REPORT INFORMATION
  Report Type: Other
  Country: US (occurrence: None)
  Receive Date: 20220826
  Receipt Date: 20220826
  Transmission Date: 20221027
  Serious: Yes (Death, Other)
  Sender: FDA-Public Use
  Company Number: US-ROCHE-2102151

PATIENT
  Age: 62 Year
  Sex: Female
  Weight: 96.1 kg

DRUGS (26)
  1. OCREVUS [Suspect]
     Active Substance: OCRELIZUMAB
     Indication: Relapsing-remitting multiple sclerosis
     Dosage: ON DAY 1 AND DAY 15?ONGOING: YES, DATE OF TREATMENT: 15/DEC/2020, 15/JUN/2020
     Route: 042
     Dates: start: 20180326
  2. OCREVUS [Suspect]
     Active Substance: OCRELIZUMAB
     Indication: Relapsing-remitting multiple sclerosis
     Route: 042
  3. OCREVUS [Suspect]
     Active Substance: OCRELIZUMAB
     Dosage: INFUSE 600MG IV AS DIRECTED
     Route: 042
  4. ASCORBIC ACID [Concomitant]
     Active Substance: ASCORBIC ACID
  5. ASPIRIN [Concomitant]
     Active Substance: ASPIRIN
  6. LIPITOR [Concomitant]
     Active Substance: ATORVASTATIN CALCIUM
  7. LIORESAL [Concomitant]
     Active Substance: BACLOFEN
  8. OSCAL [Concomitant]
     Active Substance: CALCIUM CARBONATE
  9. VITAMIN D3 [Concomitant]
     Active Substance: CHOLECALCIFEROL
  10. AMPYRA [Concomitant]
     Active Substance: DALFAMPRIDINE
  11. ARICEPT [Concomitant]
     Active Substance: DONEPEZIL HYDROCHLORIDE
  12. CYMBALTA [Concomitant]
     Active Substance: DULOXETINE HYDROCHLORIDE
  13. DIFLUCAN [Concomitant]
     Active Substance: FLUCONAZOLE
  14. FLONASE [Concomitant]
     Active Substance: FLUTICASONE PROPIONATE
  15. LASIX [Concomitant]
     Active Substance: FUROSEMIDE
  16. GABAPENTIN [Concomitant]
     Active Substance: GABAPENTIN
  17. GLUCOTROL [Concomitant]
     Active Substance: GLIPIZIDE
  18. FLUARIX NOS [Concomitant]
     Active Substance: INFLUENZA VIRUS VACCINE
  19. LEVOTHROID [Concomitant]
     Active Substance: LEVOTHYROXINE SODIUM
  20. PRINZIDE [Concomitant]
     Active Substance: HYDROCHLOROTHIAZIDE\LISINOPRIL
  21. LOPRESSOR [Concomitant]
     Active Substance: METOPROLOL TARTRATE
  22. RELAFEN [Concomitant]
     Active Substance: NABUMETONE
  23. PRILOSEC [Concomitant]
     Active Substance: OMEPRAZOLE MAGNESIUM
  24. KLOR-CON [Concomitant]
     Active Substance: POTASSIUM CHLORIDE
  25. SEROQUEL [Concomitant]
     Active Substance: QUETIAPINE FUMARATE
  26. IMITREX [Concomitant]
     Active Substance: SUMATRIPTAN SUCCINATE

REACTIONS (4)
  - Death [Fatal]
  - Diarrhoea [Unknown]
  - Cerebrovascular accident [Unknown]
  - Infection [Unknown]

NARRATIVE: CASE EVENT DATE: 20220803
